FAERS Safety Report 25665412 (Version 1)
Quarter: 2025Q3

REPORT INFORMATION
  Report Type: Spontaneous
  Country: GB (occurrence: GB)
  Receive Date: 20250811
  Receipt Date: 20250811
  Transmission Date: 20251020
  Serious: Yes (Disabling)
  Sender: MYLAN
  Company Number: GB-MHRA-TPP1573525C8643388YC1754402820408

PATIENT
  Age: 65 Year
  Sex: Female
  Weight: 108 kg

DRUGS (84)
  1. DOXYCYCLINE [Suspect]
     Active Substance: DOXYCYCLINE
     Indication: Product used for unknown indication
  2. DOXYCYCLINE [Suspect]
     Active Substance: DOXYCYCLINE
     Route: 065
  3. DOXYCYCLINE [Suspect]
     Active Substance: DOXYCYCLINE
     Route: 065
  4. DOXYCYCLINE [Suspect]
     Active Substance: DOXYCYCLINE
  5. ZOPICLONE [Concomitant]
     Active Substance: ZOPICLONE
     Indication: Ill-defined disorder
     Dates: start: 20250619, end: 20250717
  6. ZOPICLONE [Concomitant]
     Active Substance: ZOPICLONE
     Indication: Sleep disorder therapy
     Route: 065
     Dates: start: 20250619, end: 20250717
  7. ZOPICLONE [Concomitant]
     Active Substance: ZOPICLONE
     Route: 065
     Dates: start: 20250619, end: 20250717
  8. ZOPICLONE [Concomitant]
     Active Substance: ZOPICLONE
     Dates: start: 20250619, end: 20250717
  9. HYDROCORTISONE [Concomitant]
     Active Substance: HYDROCORTISONE
     Indication: Ill-defined disorder
  10. HYDROCORTISONE [Concomitant]
     Active Substance: HYDROCORTISONE
     Route: 065
  11. HYDROCORTISONE [Concomitant]
     Active Substance: HYDROCORTISONE
     Route: 065
  12. HYDROCORTISONE [Concomitant]
     Active Substance: HYDROCORTISONE
  13. PREDNISOLONE [Concomitant]
     Active Substance: PREDNISOLONE
     Indication: Ill-defined disorder
     Dosage: 8 DOSAGE FORM, QD (TAKE EIGHT TABLETS (40MG) ONCE A DAY FOR 5 DAYS)
     Dates: start: 20250619, end: 20250624
  14. PREDNISOLONE [Concomitant]
     Active Substance: PREDNISOLONE
     Dosage: 8 DOSAGE FORM, QD (TAKE EIGHT TABLETS (40MG) ONCE A DAY FOR 5 DAYS)
     Route: 065
     Dates: start: 20250619, end: 20250624
  15. PREDNISOLONE [Concomitant]
     Active Substance: PREDNISOLONE
     Dosage: 8 DOSAGE FORM, QD (TAKE EIGHT TABLETS (40MG) ONCE A DAY FOR 5 DAYS)
     Route: 065
     Dates: start: 20250619, end: 20250624
  16. PREDNISOLONE [Concomitant]
     Active Substance: PREDNISOLONE
     Dosage: 8 DOSAGE FORM, QD (TAKE EIGHT TABLETS (40MG) ONCE A DAY FOR 5 DAYS)
     Dates: start: 20250619, end: 20250624
  17. ZOLPIDEM [Concomitant]
     Active Substance: ZOLPIDEM TARTRATE
     Indication: Ill-defined disorder
     Dosage: 1 DOSAGE FORM, PM 9TAKE ONE TABLET AT NIGHT WHEN REQUIRED TO HELP )
     Dates: start: 20250805
  18. ZOLPIDEM [Concomitant]
     Active Substance: ZOLPIDEM TARTRATE
     Dosage: 1 DOSAGE FORM, PM 9TAKE ONE TABLET AT NIGHT WHEN REQUIRED TO HELP )
     Route: 065
     Dates: start: 20250805
  19. ZOLPIDEM [Concomitant]
     Active Substance: ZOLPIDEM TARTRATE
     Dosage: 1 DOSAGE FORM, PM 9TAKE ONE TABLET AT NIGHT WHEN REQUIRED TO HELP )
     Route: 065
     Dates: start: 20250805
  20. ZOLPIDEM [Concomitant]
     Active Substance: ZOLPIDEM TARTRATE
     Dosage: 1 DOSAGE FORM, PM 9TAKE ONE TABLET AT NIGHT WHEN REQUIRED TO HELP )
     Dates: start: 20250805
  21. ALENDRONIC ACID [Concomitant]
     Active Substance: ALENDRONIC ACID
     Indication: Ill-defined disorder
     Dosage: 1 DOSAGE FORM, QW (TAKE ONE TABLET ON THE SAME DAY ONCE WEEKLY ONL
     Dates: start: 20250414
  22. ALENDRONIC ACID [Concomitant]
     Active Substance: ALENDRONIC ACID
     Dosage: 1 DOSAGE FORM, QW (TAKE ONE TABLET ON THE SAME DAY ONCE WEEKLY ONL
     Route: 065
     Dates: start: 20250414
  23. ALENDRONIC ACID [Concomitant]
     Active Substance: ALENDRONIC ACID
     Dosage: 1 DOSAGE FORM, QW (TAKE ONE TABLET ON THE SAME DAY ONCE WEEKLY ONL
     Route: 065
     Dates: start: 20250414
  24. ALENDRONIC ACID [Concomitant]
     Active Substance: ALENDRONIC ACID
     Dosage: 1 DOSAGE FORM, QW (TAKE ONE TABLET ON THE SAME DAY ONCE WEEKLY ONL
     Dates: start: 20250414
  25. AMITRIPTYLINE HYDROCHLORIDE [Concomitant]
     Active Substance: AMITRIPTYLINE HYDROCHLORIDE
     Indication: Ill-defined disorder
     Dosage: 1 DOSAGE FORM, PM (TAKE ONE TABLET AT NIGHT, MAY CAUSE DROWSINESS)
     Dates: start: 20250414
  26. AMITRIPTYLINE HYDROCHLORIDE [Concomitant]
     Active Substance: AMITRIPTYLINE HYDROCHLORIDE
     Dosage: 1 DOSAGE FORM, PM (TAKE ONE TABLET AT NIGHT, MAY CAUSE DROWSINESS)
     Route: 065
     Dates: start: 20250414
  27. AMITRIPTYLINE HYDROCHLORIDE [Concomitant]
     Active Substance: AMITRIPTYLINE HYDROCHLORIDE
     Dosage: 1 DOSAGE FORM, PM (TAKE ONE TABLET AT NIGHT, MAY CAUSE DROWSINESS)
     Route: 065
     Dates: start: 20250414
  28. AMITRIPTYLINE HYDROCHLORIDE [Concomitant]
     Active Substance: AMITRIPTYLINE HYDROCHLORIDE
     Dosage: 1 DOSAGE FORM, PM (TAKE ONE TABLET AT NIGHT, MAY CAUSE DROWSINESS)
     Dates: start: 20250414
  29. AMLODIPINE [Concomitant]
     Active Substance: AMLODIPINE BESYLATE
     Indication: Ill-defined disorder
     Dosage: 1 DOSAGE FORM, QD (TAKE ONE TABLET ONCE A DAY)
     Dates: start: 20250414
  30. AMLODIPINE [Concomitant]
     Active Substance: AMLODIPINE BESYLATE
     Dosage: 1 DOSAGE FORM, QD (TAKE ONE TABLET ONCE A DAY)
     Route: 065
     Dates: start: 20250414
  31. AMLODIPINE [Concomitant]
     Active Substance: AMLODIPINE BESYLATE
     Dosage: 1 DOSAGE FORM, QD (TAKE ONE TABLET ONCE A DAY)
     Route: 065
     Dates: start: 20250414
  32. AMLODIPINE [Concomitant]
     Active Substance: AMLODIPINE BESYLATE
     Dosage: 1 DOSAGE FORM, QD (TAKE ONE TABLET ONCE A DAY)
     Dates: start: 20250414
  33. ATORVASTATIN [Concomitant]
     Active Substance: ATORVASTATIN
     Indication: Ill-defined disorder
     Dosage: 1 DOSAGE FORM, QD (TAKE ONE TABLET ONCE A DAY)
     Dates: start: 20250414
  34. ATORVASTATIN [Concomitant]
     Active Substance: ATORVASTATIN
     Dosage: 1 DOSAGE FORM, QD (TAKE ONE TABLET ONCE A DAY)
     Route: 065
     Dates: start: 20250414
  35. ATORVASTATIN [Concomitant]
     Active Substance: ATORVASTATIN
     Dosage: 1 DOSAGE FORM, QD (TAKE ONE TABLET ONCE A DAY)
     Route: 065
     Dates: start: 20250414
  36. ATORVASTATIN [Concomitant]
     Active Substance: ATORVASTATIN
     Dosage: 1 DOSAGE FORM, QD (TAKE ONE TABLET ONCE A DAY)
     Dates: start: 20250414
  37. CYCLIZINE [Concomitant]
     Active Substance: CYCLIZINE
     Indication: Ill-defined disorder
  38. CYCLIZINE [Concomitant]
     Active Substance: CYCLIZINE
     Route: 065
  39. CYCLIZINE [Concomitant]
     Active Substance: CYCLIZINE
     Route: 065
  40. CYCLIZINE [Concomitant]
     Active Substance: CYCLIZINE
  41. CALCIUM CARBONATE\CHOLECALCIFEROL [Concomitant]
     Active Substance: CALCIUM CARBONATE\CHOLECALCIFEROL
     Indication: Ill-defined disorder
     Dosage: 1 DOSAGE FORM, BID (TAKE ONE TWICE DAILY)
     Dates: start: 20250414
  42. CALCIUM CARBONATE\CHOLECALCIFEROL [Concomitant]
     Active Substance: CALCIUM CARBONATE\CHOLECALCIFEROL
     Dosage: 1 DOSAGE FORM, BID (TAKE ONE TWICE DAILY)
     Route: 065
     Dates: start: 20250414
  43. CALCIUM CARBONATE\CHOLECALCIFEROL [Concomitant]
     Active Substance: CALCIUM CARBONATE\CHOLECALCIFEROL
     Dosage: 1 DOSAGE FORM, BID (TAKE ONE TWICE DAILY)
     Route: 065
     Dates: start: 20250414
  44. CALCIUM CARBONATE\CHOLECALCIFEROL [Concomitant]
     Active Substance: CALCIUM CARBONATE\CHOLECALCIFEROL
     Dosage: 1 DOSAGE FORM, BID (TAKE ONE TWICE DAILY)
     Dates: start: 20250414
  45. BECLOMETHASONE\FORMOTEROL [Concomitant]
     Active Substance: BECLOMETHASONE\FORMOTEROL
     Indication: Ill-defined disorder
     Dosage: 1 DOSAGE FORM, BID (INHALE ONE DOSE REGULARLY TWICE DAILY AND USE O...
     Dates: start: 20250414
  46. BECLOMETHASONE\FORMOTEROL [Concomitant]
     Active Substance: BECLOMETHASONE\FORMOTEROL
     Dosage: 1 DOSAGE FORM, BID (INHALE ONE DOSE REGULARLY TWICE DAILY AND USE O...
     Route: 055
     Dates: start: 20250414
  47. BECLOMETHASONE\FORMOTEROL [Concomitant]
     Active Substance: BECLOMETHASONE\FORMOTEROL
     Dosage: 1 DOSAGE FORM, BID (INHALE ONE DOSE REGULARLY TWICE DAILY AND USE O...
     Route: 055
     Dates: start: 20250414
  48. BECLOMETHASONE\FORMOTEROL [Concomitant]
     Active Substance: BECLOMETHASONE\FORMOTEROL
     Dosage: 1 DOSAGE FORM, BID (INHALE ONE DOSE REGULARLY TWICE DAILY AND USE O...
     Dates: start: 20250414
  49. LEVOTHYROXINE [Concomitant]
     Active Substance: LEVOTHYROXINE
     Indication: Ill-defined disorder
     Dosage: 1 DOSAGE FORM, AM (TAKE ONE TABLET IN A MORNING (PREFERABLY AT LEA)
     Dates: start: 20250414
  50. LEVOTHYROXINE [Concomitant]
     Active Substance: LEVOTHYROXINE
     Dosage: 1 DOSAGE FORM, AM (TAKE ONE TABLET IN A MORNING (PREFERABLY AT LEA)
     Route: 065
     Dates: start: 20250414
  51. LEVOTHYROXINE [Concomitant]
     Active Substance: LEVOTHYROXINE
     Dosage: 1 DOSAGE FORM, AM (TAKE ONE TABLET IN A MORNING (PREFERABLY AT LEA)
     Route: 065
     Dates: start: 20250414
  52. LEVOTHYROXINE [Concomitant]
     Active Substance: LEVOTHYROXINE
     Dosage: 1 DOSAGE FORM, AM (TAKE ONE TABLET IN A MORNING (PREFERABLY AT LEA)
     Dates: start: 20250414
  53. POLYETHYLENE GLYCOLS [Concomitant]
     Active Substance: POLYETHYLENE GLYCOLS
     Indication: Ill-defined disorder
  54. POLYETHYLENE GLYCOLS [Concomitant]
     Active Substance: POLYETHYLENE GLYCOLS
     Route: 065
  55. POLYETHYLENE GLYCOLS [Concomitant]
     Active Substance: POLYETHYLENE GLYCOLS
     Route: 065
  56. POLYETHYLENE GLYCOLS [Concomitant]
     Active Substance: POLYETHYLENE GLYCOLS
  57. PANTOPRAZOLE [Concomitant]
     Active Substance: PANTOPRAZOLE
     Indication: Ill-defined disorder
     Dosage: 1 DOSAGE FORM, QD (TAKE ONE TABLET ONCE A DAY)
     Dates: start: 20250414
  58. PANTOPRAZOLE [Concomitant]
     Active Substance: PANTOPRAZOLE
     Dosage: 1 DOSAGE FORM, QD (TAKE ONE TABLET ONCE A DAY)
     Route: 065
     Dates: start: 20250414
  59. PANTOPRAZOLE [Concomitant]
     Active Substance: PANTOPRAZOLE
     Dosage: 1 DOSAGE FORM, QD (TAKE ONE TABLET ONCE A DAY)
     Route: 065
     Dates: start: 20250414
  60. PANTOPRAZOLE [Concomitant]
     Active Substance: PANTOPRAZOLE
     Dosage: 1 DOSAGE FORM, QD (TAKE ONE TABLET ONCE A DAY)
     Dates: start: 20250414
  61. ACETAMINOPHEN [Concomitant]
     Active Substance: ACETAMINOPHEN
     Indication: Ill-defined disorder
  62. ACETAMINOPHEN [Concomitant]
     Active Substance: ACETAMINOPHEN
     Route: 065
  63. ACETAMINOPHEN [Concomitant]
     Active Substance: ACETAMINOPHEN
     Route: 065
  64. ACETAMINOPHEN [Concomitant]
     Active Substance: ACETAMINOPHEN
  65. PREGABALIN [Concomitant]
     Active Substance: PREGABALIN
     Indication: Ill-defined disorder
     Dosage: 1 DOSAGE FORM, BID (TAKE ONE CAPSULE TWICE DAILY)
     Dates: start: 20250414, end: 20250522
  66. PREGABALIN [Concomitant]
     Active Substance: PREGABALIN
     Dosage: 1 DOSAGE FORM, BID (TAKE ONE CAPSULE TWICE DAILY)
     Route: 065
     Dates: start: 20250414, end: 20250522
  67. PREGABALIN [Concomitant]
     Active Substance: PREGABALIN
     Dosage: 1 DOSAGE FORM, BID (TAKE ONE CAPSULE TWICE DAILY)
     Route: 065
     Dates: start: 20250414, end: 20250522
  68. PREGABALIN [Concomitant]
     Active Substance: PREGABALIN
     Dosage: 1 DOSAGE FORM, BID (TAKE ONE CAPSULE TWICE DAILY)
     Dates: start: 20250414, end: 20250522
  69. RAMIPRIL [Concomitant]
     Active Substance: RAMIPRIL
     Indication: Ill-defined disorder
     Dosage: 1 DOSAGE FORM, QD (TAKE ONE CAPSULE ONCE DAILY)
     Dates: start: 20250414
  70. RAMIPRIL [Concomitant]
     Active Substance: RAMIPRIL
     Dosage: 1 DOSAGE FORM, QD (TAKE ONE CAPSULE ONCE DAILY)
     Route: 065
     Dates: start: 20250414
  71. RAMIPRIL [Concomitant]
     Active Substance: RAMIPRIL
     Dosage: 1 DOSAGE FORM, QD (TAKE ONE CAPSULE ONCE DAILY)
     Route: 065
     Dates: start: 20250414
  72. RAMIPRIL [Concomitant]
     Active Substance: RAMIPRIL
     Dosage: 1 DOSAGE FORM, QD (TAKE ONE CAPSULE ONCE DAILY)
     Dates: start: 20250414
  73. SENNA [Concomitant]
     Active Substance: SENNOSIDES
     Indication: Ill-defined disorder
     Dosage: UNK UNK, QD ((SENNOSIDES) TAKE ONE OR TWO TABLETS ONCE A DAY)
     Dates: start: 20250414
  74. SENNA [Concomitant]
     Active Substance: SENNOSIDES
     Dosage: UNK UNK, QD ((SENNOSIDES) TAKE ONE OR TWO TABLETS ONCE A DAY)
     Route: 065
     Dates: start: 20250414
  75. SENNA [Concomitant]
     Active Substance: SENNOSIDES
     Dosage: UNK UNK, QD ((SENNOSIDES) TAKE ONE OR TWO TABLETS ONCE A DAY)
     Route: 065
     Dates: start: 20250414
  76. SENNA [Concomitant]
     Active Substance: SENNOSIDES
     Dosage: UNK UNK, QD ((SENNOSIDES) TAKE ONE OR TWO TABLETS ONCE A DAY)
     Dates: start: 20250414
  77. TRAMADOL [Concomitant]
     Active Substance: TRAMADOL
     Indication: Ill-defined disorder
     Dosage: UNK UNK, Q8H (TAKE ONE TO TWO CAPSULES EVERY EIGHT HOURS WHEN)
     Dates: start: 20250414
  78. TRAMADOL [Concomitant]
     Active Substance: TRAMADOL
     Dosage: UNK UNK, Q8H (TAKE ONE TO TWO CAPSULES EVERY EIGHT HOURS WHEN)
     Route: 065
     Dates: start: 20250414
  79. TRAMADOL [Concomitant]
     Active Substance: TRAMADOL
     Dosage: UNK UNK, Q8H (TAKE ONE TO TWO CAPSULES EVERY EIGHT HOURS WHEN)
     Route: 065
     Dates: start: 20250414
  80. TRAMADOL [Concomitant]
     Active Substance: TRAMADOL
     Dosage: UNK UNK, Q8H (TAKE ONE TO TWO CAPSULES EVERY EIGHT HOURS WHEN)
     Dates: start: 20250414
  81. VENTOLIN [Concomitant]
     Active Substance: ALBUTEROL SULFATE
     Indication: Ill-defined disorder
  82. VENTOLIN [Concomitant]
     Active Substance: ALBUTEROL SULFATE
     Route: 065
  83. VENTOLIN [Concomitant]
     Active Substance: ALBUTEROL SULFATE
     Route: 065
  84. VENTOLIN [Concomitant]
     Active Substance: ALBUTEROL SULFATE

REACTIONS (2)
  - Abdominal pain [Recovered/Resolved]
  - Nausea [Unknown]

NARRATIVE: CASE EVENT DATE: 20250724
